FAERS Safety Report 19092548 (Version 1)
Quarter: 2021Q2

REPORT INFORMATION
  Report Type: Spontaneous
  Country: DE (occurrence: DE)
  Receive Date: 20210405
  Receipt Date: 20210405
  Transmission Date: 20210717
  Serious: Yes (Disabling)
  Sender: FDA-Public Use
  Company Number: DE-PFIZER INC-2021311181

PATIENT
  Age: 4 Year
  Sex: Male
  Weight: 24 kg

DRUGS (1)
  1. CYTOTEC [Suspect]
     Active Substance: MISOPROSTOL
     Indication: LABOUR INDUCTION
     Dosage: 1/4 OF A TABLET AND A FEW HOURS LATER ANOTHER 1/2 OF A TABLET
     Route: 064
     Dates: start: 20160807, end: 20160807

REACTIONS (3)
  - Language disorder [Recovered/Resolved with Sequelae]
  - Neonatal disorder [Recovered/Resolved with Sequelae]
  - Foetal exposure during pregnancy [Unknown]
